FAERS Safety Report 12083381 (Version 1)
Quarter: 2016Q1

REPORT INFORMATION
  Report Type: Spontaneous
  Country: US (occurrence: None)
  Receive Date: 20160216
  Receipt Date: 20160216
  Transmission Date: 20160526
  Serious: No
  Sender: FDA-Public Use
  Company Number: None

PATIENT
  Age: 55 Year
  Sex: Male

DRUGS (3)
  1. TANZEUM [Concomitant]
     Active Substance: ALBIGLUTIDE
  2. TOUJEO [Suspect]
     Active Substance: INSULIN GLARGINE
  3. METFORMIN 500MG [Suspect]
     Active Substance: METFORMIN HYDROCHLORIDE
     Dosage: 2 PILLS

REACTIONS (1)
  - Blood glucose increased [None]
